FAERS Safety Report 17125710 (Version 1)
Quarter: 2019Q4

REPORT INFORMATION
  Report Type: Spontaneous
  Country: US (occurrence: US)
  Receive Date: 20191208
  Receipt Date: 20191208
  Transmission Date: 20200122
  Serious: No
  Sender: FDA-Public Use
  Company Number: NVSC2019US061752

PATIENT
  Sex: Female

DRUGS (2)
  1. TELOTRISTAT ETHYL [Suspect]
     Active Substance: TELOTRISTAT ETHYL
     Indication: CARCINOID SYNDROME
     Dosage: 250 MG, TID
     Route: 048
  2. AFINITOR [Suspect]
     Active Substance: EVEROLIMUS
     Indication: CARCINOID SYNDROME
     Dosage: 2.5 MG, QD
     Route: 048

REACTIONS (2)
  - Upper respiratory tract infection [Unknown]
  - Nausea [Unknown]
